FAERS Safety Report 11971071 (Version 1)
Quarter: 2016Q1

REPORT INFORMATION
  Report Type: Spontaneous
  Country: None (occurrence: None)
  Receive Date: 20160127
  Receipt Date: 20160127
  Transmission Date: 20160526
  Serious: Yes (Other)
  Sender: FDA-Public Use
  Company Number: None

PATIENT
  Age: 61 Year
  Sex: Female
  Weight: 72.58 kg

DRUGS (1)
  1. BUPIVACAINE 0.75% HOSPIRA LOT# 25389 EV EXP JAN 1 2015 [Suspect]
     Active Substance: BUPIVACAINE

REACTIONS (1)
  - Drug ineffective [None]

NARRATIVE: CASE EVENT DATE: 20160126
